FAERS Safety Report 16247904 (Version 1)
Quarter: 2019Q2

REPORT INFORMATION
  Report Type: Spontaneous
  Country: US (occurrence: US)
  Receive Date: 20190322
  Receipt Date: 20190322
  Transmission Date: 20190711
  Serious: Yes (Other)
  Sender: FDA-Public Use
  Company Number: None

PATIENT
  Age: 63 Year
  Sex: Female
  Weight: 47.63 kg

DRUGS (7)
  1. CARDIZEM [Concomitant]
     Active Substance: DILTIAZEM HYDROCHLORIDE
  2. LEFLUNOMIDE 20MG [Suspect]
     Active Substance: LEFLUNOMIDE
     Indication: RHEUMATOID ARTHRITIS
     Dosage: ?          OTHER FREQUENCY:9 DAYS;?
     Route: 048
     Dates: start: 201810, end: 20190316
  3. RESTASIS [Concomitant]
     Active Substance: CYCLOSPORINE
  4. HRT [Concomitant]
     Active Substance: UNSPECIFIED INGREDIENT
  5. NP THYROID [Concomitant]
     Active Substance: LEVOTHYROXINE\LIOTHYRONINE
  6. MIGRAVENT [Concomitant]
     Active Substance: DIETARY SUPPLEMENT
  7. VITAMINS [Concomitant]
     Active Substance: VITAMINS

REACTIONS (2)
  - Pyrexia [None]
  - Food poisoning [None]

NARRATIVE: CASE EVENT DATE: 20190219
